FAERS Safety Report 22538810 (Version 4)
Quarter: 2023Q2

REPORT INFORMATION
  Report Type: Report from Study
  Country: US (occurrence: US)
  Receive Date: 20230609
  Receipt Date: 20230619
  Transmission Date: 20230721
  Serious: Yes (Other)
  Sender: FDA-Public Use
  Company Number: US-AMGEN-USASP2023099382

PATIENT
  Age: 84 Year
  Sex: Male

DRUGS (5)
  1. PROLIA [Suspect]
     Active Substance: DENOSUMAB
     Indication: Spinal compression fracture
     Dosage: 60 MILLIGRAM, Q6MO
     Route: 065
     Dates: start: 202306
  2. PROLIA [Suspect]
     Active Substance: DENOSUMAB
     Indication: Prostate cancer
     Dosage: 60 MILLIGRAM, QMO
     Route: 065
  3. PROLIA [Suspect]
     Active Substance: DENOSUMAB
     Indication: Osteopenia
  4. PROLIA [Suspect]
     Active Substance: DENOSUMAB
     Indication: Osteoporosis
  5. PROLIA [Suspect]
     Active Substance: DENOSUMAB
     Indication: Metastases to bone

REACTIONS (3)
  - Thoracic vertebral fracture [Unknown]
  - Off label use [Unknown]
  - Fatigue [Unknown]

NARRATIVE: CASE EVENT DATE: 20230101
